FAERS Safety Report 25084027 (Version 1)
Quarter: 2025Q1

REPORT INFORMATION
  Report Type: Spontaneous
  Country: US (occurrence: US)
  Receive Date: 20250317
  Receipt Date: 20250317
  Transmission Date: 20250408
  Serious: Yes (Other)
  Sender: MYLAN
  Company Number: US-MYLANLABS-2025M1020534

PATIENT
  Sex: Female
  Weight: 48.53 kg

DRUGS (15)
  1. GABAPENTIN [Suspect]
     Active Substance: GABAPENTIN
     Indication: Fibromyalgia
  2. GABAPENTIN [Suspect]
     Active Substance: GABAPENTIN
     Indication: Neuropathy peripheral
  3. PFIZER-BIONTECH COVID-19 VACCINE [Suspect]
     Active Substance: TOZINAMERAN
     Indication: COVID-19 immunisation
  4. PFIZER-BIONTECH COVID-19 VACCINE [Suspect]
     Active Substance: TOZINAMERAN
  5. BUPROPION [Concomitant]
     Active Substance: BUPROPION
     Indication: Fibromyalgia
     Dosage: 100 MILLIGRAM, QD (ONCE A DAY, BEGAN IT PROBABLY 20 YEARS AGO)
  6. LORAZEPAM [Concomitant]
     Active Substance: LORAZEPAM
     Indication: Fibromyalgia
     Dosage: 0.5 MILLIGRAM, BID (TWICE A DAY, BEGAN 20 YEARS AGO)
  7. BACLOFEN [Concomitant]
     Active Substance: BACLOFEN
     Indication: Fibromyalgia
  8. VENLAFAXINE [Concomitant]
     Active Substance: VENLAFAXINE HYDROCHLORIDE
     Indication: Fibromyalgia
     Dosage: UNK, QD (TAKES A COMBINATION OF TWO PILLS AND TAKES 37.5 AND 75 MG AND TAKES THIS ONCE PER DAY, BEGAN TAKING 20 YEARS AGO)
  9. HYDROCODONE [Concomitant]
     Active Substance: HYDROCODONE
     Indication: Intervertebral disc protrusion
     Dosage: UNK, BID (5 TO 325 AND COULD TAKE IT UPTO TWICE A DAY, BEGAN TAKING IT 25 YEARS AGO)
  10. HYDROCODONE [Concomitant]
     Active Substance: HYDROCODONE
     Indication: Exostosis
  11. HYDROCODONE [Concomitant]
     Active Substance: HYDROCODONE
     Indication: Fibromyalgia
  12. CANNABIS SATIVA SUBSP. INDICA TOP [Concomitant]
     Active Substance: CANNABIS SATIVA SUBSP. INDICA TOP
     Indication: Sleep disorder
  13. ALBUTEROL [Concomitant]
     Active Substance: ALBUTEROL
     Indication: Seasonal allergy
  14. CYMBALTA [Concomitant]
     Active Substance: DULOXETINE HYDROCHLORIDE
     Indication: Fibromyalgia
  15. OMEPRAZOLE [Concomitant]
     Active Substance: OMEPRAZOLE

REACTIONS (3)
  - Gastrooesophageal reflux disease [Unknown]
  - Dyspepsia [Not Recovered/Not Resolved]
  - Off label use [Unknown]

NARRATIVE: CASE EVENT DATE: 20210101
